FAERS Safety Report 9845924 (Version 1)
Quarter: 2014Q1

REPORT INFORMATION
  Report Type: Spontaneous
  Country: US (occurrence: None)
  Receive Date: 20140122
  Receipt Date: 20140122
  Transmission Date: 20141002
  Serious: Yes (Other)
  Sender: FDA-Public Use
  Company Number: 7262052

PATIENT
  Age: 70 Year
  Sex: Male

DRUGS (10)
  1. LEVOTHYROXINE [Suspect]
     Indication: PRODUCT USED FOR UNKNOWN INDICATION
  2. ATORVASTATIN [Suspect]
     Indication: PRODUCT USED FOR UNKNOWN INDICATION
  3. INSULIN GLARIGINE [Concomitant]
  4. SITAGLIPTIN (SITAGLIPTIN) [Concomitant]
  5. AMLODIPINE (AMLODPINE) [Concomitant]
  6. METOPROLOL (METOPROLOL) [Concomitant]
  7. CANDESARTAN (CANDESARTAN) [Concomitant]
  8. RAMIPRIL (RAMIPRIL) [Concomitant]
  9. ASPIRIN/00002701/ACETYLSALICYLIC ACID) [Concomitant]
  10. VITAMIN D3 (ERGOCALCIFEROL) [Concomitant]

REACTIONS (3)
  - Myopathy [None]
  - Aspartate aminotransferase increased [None]
  - Low density lipoprotein increased [None]
